FAERS Safety Report 10709278 (Version 1)
Quarter: 2015Q1

REPORT INFORMATION
  Report Type: Spontaneous
  Country: US (occurrence: US)
  Receive Date: 20150114
  Receipt Date: 20150114
  Transmission Date: 20150721
  Serious: Yes (Other)
  Sender: FDA-Public Use
  Company Number: US-BIOGENIDEC-2014BI112855

PATIENT
  Age: 41 Year
  Sex: Female

DRUGS (7)
  1. AMPYRA [Concomitant]
     Active Substance: DALFAMPRIDINE
     Indication: MULTIPLE SCLEROSIS
     Route: 048
     Dates: start: 20120329, end: 201308
  2. AMPYRA [Concomitant]
     Active Substance: DALFAMPRIDINE
     Indication: ASTHENIA
     Route: 048
     Dates: start: 20120329, end: 201308
  3. GILENYA [Concomitant]
     Active Substance: FINGOLIMOD HYDROCHLORIDE
     Indication: PRODUCT USED FOR UNKNOWN INDICATION
  4. AMPYRA [Concomitant]
     Active Substance: DALFAMPRIDINE
     Indication: FATIGUE
     Route: 048
     Dates: start: 20120329, end: 201308
  5. OXYBUTIN [Concomitant]
     Active Substance: OXYBUTYNIN
     Indication: DYSURIA
     Route: 048
  6. ESTRADIOL. [Concomitant]
     Active Substance: ESTRADIOL
  7. TECFIDERA [Suspect]
     Active Substance: DIMETHYL FUMARATE
     Indication: PRODUCT USED FOR UNKNOWN INDICATION

REACTIONS (7)
  - Nystagmus [Unknown]
  - Feeding disorder [Unknown]
  - Insomnia [Unknown]
  - Ataxia [Unknown]
  - Pancytopenia [Unknown]
  - Abdominal pain [Unknown]
  - Diarrhoea [Recovered/Resolved]
